FAERS Safety Report 15892084 (Version 1)
Quarter: 2019Q1

REPORT INFORMATION
  Report Type: Spontaneous
  Country: DE (occurrence: DE)
  Receive Date: 20190130
  Receipt Date: 20190130
  Transmission Date: 20190417
  Serious: Yes (Other)
  Sender: FDA-Public Use
  Company Number: DE-009507513-2003-12-0890

PATIENT
  Age: 40 Year
  Sex: Male

DRUGS (2)
  1. INTRON A [Suspect]
     Active Substance: INTERFERON ALFA-2B
     Indication: METASTATIC RENAL CELL CARCINOMA
     Dosage: INITIAL DOSE: 2 ? 10^6 IU
     Route: 058
  2. INTRON A [Suspect]
     Active Substance: INTERFERON ALFA-2B
     Indication: METASTASES TO LUNG
     Dosage: INCREASED DOSE: 10 ? 10^6 IU 5 TIMES PER WEEK

REACTIONS (6)
  - Retinal haemorrhage [Recovered/Resolved]
  - Vision blurred [Not Recovered/Not Resolved]
  - Retinal ischaemia [Not Recovered/Not Resolved]
  - Chorioretinal disorder [Not Recovered/Not Resolved]
  - Retinal exudates [Recovered/Resolved]
  - Visual field defect [Not Recovered/Not Resolved]
